FAERS Safety Report 6406331-8 (Version None)
Quarter: 2009Q4

REPORT INFORMATION
  Report Type: 
  Country: None (occurrence: None)
  Receive Date: 20091008
  Receipt Date: 20090924
  Transmission Date: 20100525
  Serious: Yes (Other)
  Sender: FDA-Public Use
  Company Number: AEGBR200900275

PATIENT
  Age: 88 Year
  Sex: Male

DRUGS (1)
  1. IMMUNE GLOBULIN (HUMAN) [Suspect]
     Indication: NEUROPATHY PERIPHERAL
     Dosage: IV
     Route: 042
     Dates: start: 20090902, end: 20090908

REACTIONS (1)
  - ACUTE MYOCARDIAL INFARCTION [None]
